FAERS Safety Report 4882572-6 (Version None)
Quarter: 2006Q1

REPORT INFORMATION
  Report Type: 
  Country: None (occurrence: None)
  Receive Date: 20060113
  Receipt Date: 20060105
  Transmission Date: 20060701
  Serious: Yes (Hospitalization, Disabling)
  Sender: FDA-Public Use
  Company Number: TPA2006A00027

PATIENT
  Age: 39 Year
  Sex: Female
  Weight: 83.9154 kg

DRUGS (4)
  1. ACTOS [Suspect]
     Indication: DIABETES MELLITUS NON-INSULIN-DEPENDENT
     Dosage: 45 MG, 1 IN 1 D, PER ORAL
     Route: 048
     Dates: start: 20010105
  2. GLUCOPHAGE [Concomitant]
  3. AMARYL [Concomitant]
  4. LIPITOR [Concomitant]

REACTIONS (6)
  - BACK INJURY [None]
  - HIP ARTHROPLASTY [None]
  - HYSTERECTOMY [None]
  - JOINT INJURY [None]
  - LOWER LIMB DEFORMITY [None]
  - PHYSICAL ASSAULT [None]
